FAERS Safety Report 25882327 (Version 1)
Quarter: 2025Q4

REPORT INFORMATION
  Report Type: Report from Study
  Country: AU (occurrence: AU)
  Receive Date: 20251006
  Receipt Date: 20251006
  Transmission Date: 20260118
  Serious: Yes (Other)
  Sender: ALEXION PHARMACEUTICALS
  Company Number: AU-AstraZeneca-CH-00960542A

PATIENT
  Age: 34 Year
  Sex: Female
  Weight: 90 kg

DRUGS (1)
  1. ULTOMIRIS [Suspect]
     Active Substance: RAVULIZUMAB-CWVZ
     Indication: Paroxysmal nocturnal haemoglobinuria
     Dosage: 3300 MILLIGRAM, Q8W
     Dates: start: 20220503

REACTIONS (1)
  - Vascular device occlusion [Recovered/Resolved]

NARRATIVE: CASE EVENT DATE: 20250929
